FAERS Safety Report 7435931-1 (Version None)
Quarter: 2011Q2

REPORT INFORMATION
  Report Type: 
  Country: None (occurrence: None)
  Receive Date: 20110425
  Receipt Date: 20110412
  Transmission Date: 20111010
  Serious: Yes (Other)
  Sender: FDA-Public Use
  Company Number: BR-PFIZER INC-2011023009

PATIENT
  Age: 58 Year
  Sex: Male

DRUGS (3)
  1. OMEPRAZOLE [Concomitant]
     Dosage: UNK
  2. BENICAR [Suspect]
     Indication: HYPERTENSION
     Dosage: 20 MG, 1X/DAY
     Route: 048
     Dates: start: 20060101
  3. DOXAZOSIN MESILATE [Suspect]
     Indication: OLIGURIA
     Dosage: 2 MG, UNK
     Route: 048
     Dates: start: 20110116, end: 20110116

REACTIONS (4)
  - DYSPNOEA [None]
  - HYPOTENSION [None]
  - OLIGURIA [None]
  - DIZZINESS [None]
